FAERS Safety Report 6804814-X (Version None)
Quarter: 2010Q2

REPORT INFORMATION
  Report Type: 
  Country: None (occurrence: None)
  Receive Date: 20100628
  Receipt Date: 20070606
  Transmission Date: 20101027
  Serious: No
  Sender: FDA-Public Use
  Company Number: US-PFIZER INC-2007047028

PATIENT
  Age: 26 Year
  Sex: Male

DRUGS (2)
  1. GEODON [Suspect]
     Dosage: 80
  2. DEPAKOTE [Concomitant]

REACTIONS (1)
  - HEPATIC ENZYME INCREASED [None]
